FAERS Safety Report 15219824 (Version 6)
Quarter: 2019Q1

REPORT INFORMATION
  Report Type: Spontaneous
  Country: JP (occurrence: JP)
  Receive Date: 20180731
  Receipt Date: 20190315
  Transmission Date: 20190417
  Serious: Yes (Death, Other)
  Sender: FDA-Public Use
  Company Number: JP-BRISTOL-MYERS SQUIBB COMPANY-BMS-2018-070621

PATIENT
  Age: 71 Year
  Sex: Female
  Weight: 33 kg

DRUGS (1)
  1. OPDIVO [Suspect]
     Active Substance: NIVOLUMAB
     Indication: GASTRIC CANCER
     Dosage: 100 MG, QD
     Route: 041
     Dates: start: 20171117

REACTIONS (4)
  - Malignant neoplasm progression [Fatal]
  - Spinal compression fracture [Not Recovered/Not Resolved]
  - Oedema peripheral [Recovering/Resolving]
  - Osteoporosis [Unknown]

NARRATIVE: CASE EVENT DATE: 2018
